FAERS Safety Report 7494581-1 (Version None)
Quarter: 2011Q2

REPORT INFORMATION
  Report Type: 
  Country: None (occurrence: None)
  Receive Date: 20110520
  Receipt Date: 20110517
  Transmission Date: 20111010
  Serious: Yes (Death, Other)
  Sender: FDA-Public Use
  Company Number: PHHY2011US30127

PATIENT
  Sex: Female

DRUGS (7)
  1. CALCIUM CARBONATE [Concomitant]
     Dosage: 1 DF, QD
     Dates: start: 20081108
  2. BLOOD TRANSFUSION, AUXILIARY PRODUCTS [Concomitant]
  3. EXJADE [Suspect]
     Indication: MYELODYSPLASTIC SYNDROME
     Dosage: 500 MG, QD
     Route: 048
     Dates: start: 20110328, end: 20110404
  4. EXJADE [Suspect]
     Dosage: UNK
     Dates: start: 20110409
  5. FOSAMAX [Concomitant]
     Indication: OSTEOPOROSIS
     Dosage: 70 MG PER WEEK
     Dates: start: 20081121
  6. HYDROCODONE [Concomitant]
     Indication: BACK PAIN
     Dosage: 10/500 MG, UNK
     Dates: start: 20091216
  7. ISOSORBIDE DINITRATE [Concomitant]
     Indication: CARDIAC FAILURE CONGESTIVE
     Dosage: 60 MG, DAILY
     Dates: start: 20101006

REACTIONS (6)
  - DISEASE PROGRESSION [None]
  - EYE PAIN [None]
  - FALL [None]
  - EYE DISORDER [None]
  - BACK PAIN [None]
  - FRACTURE [None]
